FAERS Safety Report 6149325-2 (Version None)
Quarter: 2009Q2

REPORT INFORMATION
  Report Type: 
  Country: None (occurrence: None)
  Receive Date: 20090409
  Receipt Date: 20080827
  Transmission Date: 20091009
  Serious: No
  Sender: FDA-Public Use
  Company Number: US-BAYER-200825334NA

PATIENT
  Age: 68 Year
  Sex: Male

DRUGS (1)
  1. TRASYLOL [Suspect]
     Indication: VASCULAR GRAFT
     Dates: start: 20060101

REACTIONS (1)
  - THROMBOSIS [None]
